FAERS Safety Report 24551229 (Version 1)
Quarter: 2024Q4

REPORT INFORMATION
  Report Type: Spontaneous
  Country: US (occurrence: None)
  Receive Date: 20241024
  Receipt Date: 20241024
  Transmission Date: 20250114
  Serious: Yes (unspecified)
  Sender: Public
  Company Number: None

PATIENT
  Age: 58 Year
  Sex: Male
  Weight: 157.85 kg

DRUGS (2)
  1. DEVICE [Suspect]
     Active Substance: DEVICE
  2. NOREPINEPHRINE [Suspect]
     Active Substance: NOREPINEPHRINE\NOREPINEPHRINE BITARTRATE

REACTIONS (3)
  - Blood pressure decreased [None]
  - Device issue [None]
  - Haemorrhage [None]

NARRATIVE: CASE EVENT DATE: 20241019
